FAERS Safety Report 13868529 (Version 4)
Quarter: 2019Q2

REPORT INFORMATION
  Report Type: Report from Study
  Country: BR (occurrence: BR)
  Receive Date: 20170815
  Receipt Date: 20190405
  Transmission Date: 20190711
  Serious: Yes (Hospitalization, Other)
  Sender: FDA-Public Use
  Company Number: BR-ROCHE-1448308

PATIENT
  Sex: Female
  Weight: 63 kg

DRUGS (26)
  1. BRIMONIDINE TARTRATE. [Concomitant]
     Active Substance: BRIMONIDINE TARTRATE
     Indication: GLAUCOMA
     Dosage: 1 DROP, TWICE PER DAY IN EACH EYE
     Route: 065
  2. ALENIA (BUDESONIDE/FORMOTEROL FUMARATE) [Concomitant]
     Indication: ASTHMA
     Route: 065
  3. COBAMAMIDE [Concomitant]
     Active Substance: COBAMAMIDE
     Indication: HYPOVITAMINOSIS
     Dosage: 6 VIALS IN TOTAL, 1 VIAL A WEEK?REPORTED AS CRONOBE
     Route: 065
     Dates: start: 201407
  4. XOLAIR [Suspect]
     Active Substance: OMALIZUMAB
     Route: 058
     Dates: start: 201902
  5. BAMIFIX [Concomitant]
     Active Substance: BAMIFYLLINE HYDROCHLORIDE
     Indication: ASTHMA
     Route: 065
  6. DESLORATADINE. [Concomitant]
     Active Substance: DESLORATADINE
     Indication: ANTIALLERGIC THERAPY
     Route: 065
     Dates: start: 20140806
  7. ALENIA (BUDESONIDE/FORMOTEROL FUMARATE) [Concomitant]
     Indication: RESPIRATORY DISORDER
     Dosage: 2 DF, QD
     Route: 055
  8. ALENDRONATE [Concomitant]
     Active Substance: ALENDRONATE SODIUM
     Indication: BLOOD CALCIUM ABNORMAL
     Route: 065
  9. FUROSEMIDE. [Concomitant]
     Active Substance: FUROSEMIDE
     Indication: HYPERTENSION
     Route: 065
  10. FUROSEMIDE. [Concomitant]
     Active Substance: FUROSEMIDE
     Indication: ASTHMA
     Route: 048
  11. CALTRATE WITH VITAMIN D [Concomitant]
     Active Substance: CALCIUM CARBONATE\CHOLECALCIFEROL
     Indication: OSTEOPOROSIS
     Route: 065
  12. BAMIFIX [Concomitant]
     Active Substance: BAMIFYLLINE HYDROCHLORIDE
     Indication: RESPIRATORY DISORDER
     Route: 048
  13. NASONEX [Concomitant]
     Active Substance: MOMETASONE FUROATE
     Indication: NASAL CONGESTION
     Route: 065
  14. ESOMEPRAZOLE. [Concomitant]
     Active Substance: ESOMEPRAZOLE MAGNESIUM
     Indication: PROPHYLAXIS AGAINST GASTROINTESTINAL ULCER
     Route: 065
  15. XOLAIR [Suspect]
     Active Substance: OMALIZUMAB
     Indication: ASTHMA
     Dosage: 1 VIAL
     Route: 058
     Dates: start: 201201
  16. XOLAIR [Suspect]
     Active Substance: OMALIZUMAB
     Dosage: 1 DF (1 VIAL) EVERY 15 DAYS
     Route: 058
  17. XOLAIR [Suspect]
     Active Substance: OMALIZUMAB
     Dosage: 150 MG, 3 INJECTIONS EVERY 2 WEEKS
     Route: 058
     Dates: start: 201409
  18. XOLAIR [Suspect]
     Active Substance: OMALIZUMAB
     Route: 058
  19. PANTOPRAZOLE [Concomitant]
     Active Substance: PANTOPRAZOLE
     Indication: PROPHYLAXIS AGAINST GASTROINTESTINAL ULCER
     Dosage: 1 DF, QD (FASTING, IN THE MORNING)
     Route: 065
  20. XOLAIR [Suspect]
     Active Substance: OMALIZUMAB
     Route: 058
  21. PRELONE [Concomitant]
     Active Substance: PREDNISOLONE
     Indication: ASTHMA
     Route: 065
  22. XOLAIR [Suspect]
     Active Substance: OMALIZUMAB
     Route: 058
     Dates: start: 20170508
  23. MONTELAIR [Concomitant]
     Active Substance: MONTELUKAST SODIUM
     Indication: ASTHMA
     Dosage: 10 MG, QHS
     Route: 065
  24. TRAYENTA [Concomitant]
     Active Substance: LINAGLIPTIN
     Indication: DIABETES MELLITUS
     Dosage: 1 DF, 5 MG, QD
     Route: 048
  25. VECASTEN [Concomitant]
     Indication: LYMPHOEDEMA
     Dosage: 1 TAB PER DAY
     Route: 048
  26. ERGOCALCIFEROL. [Concomitant]
     Active Substance: ERGOCALCIFEROL
     Route: 065

REACTIONS (11)
  - Weight decreased [Recovered/Resolved]
  - Chest discomfort [Recovering/Resolving]
  - Swelling [Recovering/Resolving]
  - Wheezing [Recovered/Resolved]
  - Asthmatic crisis [Recovering/Resolving]
  - Osteoporosis [Unknown]
  - Oxygen saturation decreased [Unknown]
  - Cough [Recovering/Resolving]
  - Breath sounds abnormal [Recovering/Resolving]
  - Asthma [Recovered/Resolved]
  - Alopecia [Not Recovered/Not Resolved]
